FAERS Safety Report 8309999-4 (Version None)
Quarter: 2012Q2

REPORT INFORMATION
  Report Type: 
  Country: None (occurrence: None)
  Receive Date: 20120425
  Receipt Date: 20120418
  Transmission Date: 20120825
  Serious: Yes (Other)
  Sender: FDA-Public Use
  Company Number: US-PFIZER INC-2012096698

PATIENT

DRUGS (1)
  1. NEURONTIN [Suspect]
     Indication: NERVE BLOCK
     Dosage: 300 MG, UNK

REACTIONS (2)
  - BACK DISORDER [None]
  - GASTROINTESTINAL DISORDER [None]
